FAERS Safety Report 24982095 (Version 1)
Quarter: 2025Q1

REPORT INFORMATION
  Report Type: Spontaneous
  Country: US (occurrence: US)
  Receive Date: 20250218
  Receipt Date: 20250218
  Transmission Date: 20250409
  Serious: No
  Sender: LUNDBECK
  Company Number: US-LUNDBECK-DKLU4010683

PATIENT
  Age: 13 Year
  Sex: Female
  Weight: 33 kg

DRUGS (1)
  1. ONFI [Suspect]
     Active Substance: CLOBAZAM
     Indication: Seizure
     Dates: start: 20180921

REACTIONS (1)
  - Somnolence [Unknown]
